FAERS Safety Report 9296092 (Version 2)
Quarter: 2013Q3

REPORT INFORMATION
  Report Type: Report from Study
  Country: JP (occurrence: JP)
  Receive Date: 20130517
  Receipt Date: 20130717
  Transmission Date: 20140515
  Serious: Yes (Hospitalization)
  Sender: FDA-Public Use
  Company Number: JP-009507513-1305JPN006775

PATIENT
  Age: 70 Year
  Sex: Female
  Weight: 54.5 kg

DRUGS (12)
  1. REFLEX [Suspect]
     Indication: DEPRESSION
     Dosage: 15 MG, QD
     Route: 048
     Dates: start: 20110817, end: 20110902
  2. REFLEX [Suspect]
     Indication: DEPRESSION
     Dosage: 30 MG, QD
     Route: 048
     Dates: start: 20110903, end: 20110925
  3. VALERIN [Suspect]
     Indication: MANIA
     Dosage: UNK
     Route: 048
     Dates: end: 20110925
  4. ZYPREXA [Suspect]
     Indication: MANIA
     Dosage: UNK
     Route: 048
     Dates: end: 20110925
  5. LITHIUM CARBONATE [Suspect]
     Indication: MANIA
     Dosage: UNK
     Route: 048
     Dates: start: 20110817, end: 20110902
  6. LITHIUM CARBONATE [Suspect]
     Dosage: UNK
     Route: 048
     Dates: start: 20110903, end: 20110925
  7. DONEPEZIL HYDROCHLORIDE [Concomitant]
     Indication: DEMENTIA ALZHEIMER^S TYPE
     Dosage: 5 MG, QD
     Route: 048
     Dates: end: 20110925
  8. AMLODIPINE BESYLATE [Concomitant]
     Indication: ESSENTIAL HYPERTENSION
     Dosage: UNK
     Route: 048
     Dates: end: 20110925
  9. LOSARTAN POTASSIUM [Concomitant]
     Indication: ESSENTIAL HYPERTENSION
     Dosage: UNK
     Route: 048
     Dates: end: 20110925
  10. ELECTROLYTES (UNSPECIFIED) (+) MALTOSE (+) SODIUM LACTATE [Concomitant]
     Indication: ALTERED STATE OF CONSCIOUSNESS
     Dosage: ROUTE - INJECTION
     Dates: start: 20110924, end: 20110930
  11. ELECTROLYTES (UNSPECIFIED) [Concomitant]
     Indication: ALTERED STATE OF CONSCIOUSNESS
     Dosage: ROUTE-INJECTION
     Dates: start: 20110924, end: 20110930
  12. AMINO ACIDS (UNSPECIFIED) (+) CARBOHYDRATES (UNSPECIFIED) (+) ELECTROL [Concomitant]
     Indication: ALTERED STATE OF CONSCIOUSNESS
     Dosage: ROUTE -INJECTION
     Dates: start: 20110924, end: 20110930

REACTIONS (1)
  - Altered state of consciousness [Recovered/Resolved]
